FAERS Safety Report 15238107 (Version 1)
Quarter: 2018Q3

REPORT INFORMATION
  Report Type: Spontaneous
  Country: DE (occurrence: DE)
  Receive Date: 20180803
  Receipt Date: 20180803
  Transmission Date: 20181010
  Serious: Yes (Hospitalization, Other)
  Sender: FDA-Public Use
  Company Number: PHHY2018DE058608

PATIENT

DRUGS (6)
  1. TACROLIMUS. [Suspect]
     Active Substance: TACROLIMUS
     Indication: IMMUNOSUPPRESSANT DRUG THERAPY
     Dosage: 0.05 MG/KG, UNK
     Route: 065
  2. TACROLIMUS. [Suspect]
     Active Substance: TACROLIMUS
     Dosage: REDUCED TO 0.05 MG/KG FOR THE SECOND DOSE AND ADJUSTED ACCORDING TO 12?HOUR? TROUGH LEVEL
     Route: 065
  3. TACROLIMUS. [Suspect]
     Active Substance: TACROLIMUS
     Dosage: 0.1 MG/KG, UNK
     Route: 065
  4. MYCOPHENOLATE MOFETIL. [Suspect]
     Active Substance: MYCOPHENOLATE MOFETIL
     Dosage: STARTED 7 DAYS POST?TRANSPLANT 10 MG/KG/D IN 2 DOSES FOR 2 WEEKS.
     Route: 065
  5. TACROLIMUS. [Suspect]
     Active Substance: TACROLIMUS
     Dosage: STARTED WITHIN 12 HOURS POST LIVER TRANSPLANTATION WITH A LOADING DOSE
     Route: 065
  6. MYCOPHENOLATE MOFETIL. [Suspect]
     Active Substance: MYCOPHENOLATE MOFETIL
     Indication: IMMUNOSUPPRESSANT DRUG THERAPY
     Dosage: GRADUALLY INCREASING TO A MAXIMUM OF 20 MG/KG/D IN 2 DOSES.
     Route: 065

REACTIONS (2)
  - Impaired healing [Unknown]
  - Post transplant lymphoproliferative disorder [Unknown]
